FAERS Safety Report 9361564 (Version 2)
Quarter: 2013Q3

REPORT INFORMATION
  Report Type: Spontaneous
  Country: US (occurrence: US)
  Receive Date: 20130621
  Receipt Date: 20130702
  Transmission Date: 20140515
  Serious: Yes (Hospitalization)
  Sender: FDA-Public Use
  Company Number: US-CELGENEUS-163-20785-13053156

PATIENT
  Age: 14 Year
  Sex: Female

DRUGS (4)
  1. THALOMID [Suspect]
     Indication: PLASMABLASTIC LYMPHOMA
     Dosage: 250 MILLIGRAM
     Route: 048
     Dates: start: 20130320, end: 20130614
  2. VELCADE [Concomitant]
     Indication: LYMPHOMA
     Route: 058
     Dates: start: 20130320
  3. RAPAMUNE [Concomitant]
     Indication: IMMUNOSUPPRESSION
     Dosage: 3 MILLIGRAM
     Route: 048
     Dates: start: 20130130
  4. CYMBALTA [Concomitant]
     Indication: DEPRESSION
     Dosage: 60 MILLIGRAM
     Route: 048
     Dates: start: 201212

REACTIONS (1)
  - Impaired gastric emptying [Recovering/Resolving]
